FAERS Safety Report 5396016-1 (Version None)
Quarter: 2007Q3

REPORT INFORMATION
  Report Type: 
  Country: None (occurrence: None)
  Receive Date: 20070724
  Receipt Date: 20070712
  Transmission Date: 20080115
  Serious: Yes (Other)
  Sender: FDA-Public Use
  Company Number: US-PFIZER INC-2007058344

PATIENT
  Sex: Male
  Weight: 109.8 kg

DRUGS (1)
  1. CELEBREX [Suspect]
     Indication: ARTHRALGIA

REACTIONS (12)
  - ABDOMINAL PAIN [None]
  - ANGINA PECTORIS [None]
  - CARDIAC VALVE DISEASE [None]
  - CEREBROVASCULAR ACCIDENT [None]
  - CHEST PAIN [None]
  - DEEP VEIN THROMBOSIS [None]
  - HEART INJURY [None]
  - HEPATOCELLULAR DAMAGE [None]
  - HYPERSENSITIVITY [None]
  - HYPERTENSION [None]
  - OEDEMA PERIPHERAL [None]
  - RENAL DISORDER [None]
